FAERS Safety Report 4277121-X (Version None)
Quarter: 2004Q1

REPORT INFORMATION
  Report Type: 
  Country: None (occurrence: None)
  Receive Date: 20040120
  Receipt Date: 20040107
  Transmission Date: 20041129
  Serious: Yes (Hospitalization)
  Sender: FDA-Public Use
  Company Number: HQWYE216009JAN04

PATIENT
  Age: 57 Year
  Sex: Male

DRUGS (8)
  1. EFFEXOR [Suspect]
     Indication: DEPRESSION
     Dosage: 37.5 MG 2X PER 1 DAY; 75 MG 2X PER 1 DAY; 75 MG 3X PER 1 DAY
     Route: 048
  2. EFFEXOR [Suspect]
     Indication: DEPRESSION
     Dosage: 37.5 MG 2X PER 1 DAY; 75 MG 2X PER 1 DAY; 75 MG 3X PER 1 DAY
     Route: 048
  3. EFFEXOR [Suspect]
     Indication: DEPRESSION
     Dosage: 37.5 MG 2X PER 1 DAY; 75 MG 2X PER 1 DAY; 75 MG 3X PER 1 DAY
     Route: 048
  4. CEFTIN [Concomitant]
  5. TENORMIN [Concomitant]
  6. ATIVAN [Concomitant]
  7. GLUCOPHAGE [Concomitant]
  8. ACETYLSALICYLIC ACID SRT [Concomitant]

REACTIONS (17)
  - AGRANULOCYTOSIS [None]
  - BONE MARROW DEPRESSION [None]
  - CHILLS [None]
  - CONDITION AGGRAVATED [None]
  - COUGH [None]
  - EAR INFECTION [None]
  - FATIGUE [None]
  - GENERAL PHYSICAL HEALTH DETERIORATION [None]
  - HEADACHE [None]
  - LYMPHOCYTE MORPHOLOGY ABNORMAL [None]
  - MYELOID MATURATION ARREST [None]
  - PANCYTOPENIA [None]
  - PHARYNGITIS [None]
  - PYREXIA [None]
  - SINUS POLYP [None]
  - THROMBOCYTOPENIA [None]
  - WHITE BLOOD CELL DISORDER [None]
